FAERS Safety Report 21948539 (Version 1)
Quarter: 2023Q1

REPORT INFORMATION
  Report Type: Spontaneous
  Country: US (occurrence: US)
  Receive Date: 20230203
  Receipt Date: 20230203
  Transmission Date: 20230417
  Serious: Yes (Other)
  Sender: FDA-Public Use
  Company Number: US-SANOFI-01464564

PATIENT
  Age: 69 Year
  Sex: Female

DRUGS (1)
  1. LANTUS SOLOSTAR [Suspect]
     Active Substance: INSULIN GLARGINE
     Indication: Diabetes mellitus
     Dosage: 28 IU, BID

REACTIONS (3)
  - Blindness unilateral [Unknown]
  - Glycosylated haemoglobin increased [Unknown]
  - Inappropriate schedule of product administration [Unknown]
